FAERS Safety Report 9083590 (Version 2)
Quarter: 2013Q2

REPORT INFORMATION
  Report Type: Spontaneous
  Country: US (occurrence: US)
  Receive Date: 20130130
  Receipt Date: 20130506
  Transmission Date: 20140414
  Serious: Yes (Hospitalization)
  Sender: FDA-Public Use
  Company Number: US-BAYER-2013-012207

PATIENT
  Age: 37 Year
  Sex: Female
  Weight: 65.76 kg

DRUGS (12)
  1. YAZ [Suspect]
     Indication: ACNE
     Dosage: UNK
     Dates: start: 201201, end: 201208
  2. YAZ [Suspect]
     Indication: PREMENSTRUAL SYNDROME
  3. CELEBREX [Concomitant]
  4. OXYCODONE [Concomitant]
  5. SENNA [Concomitant]
  6. AMBIEN [Concomitant]
  7. MORPHINE [Concomitant]
     Indication: PAIN
  8. LORAZEPAM [Concomitant]
  9. TRAMADOL [Concomitant]
     Indication: LIMB INJURY
  10. HYDROCODONE [Concomitant]
     Indication: LIMB INJURY
  11. GIANVI [Suspect]
     Indication: ACNE
  12. GIANVI [Suspect]
     Indication: PREMENSTRUAL SYNDROME

REACTIONS (10)
  - Pulmonary embolism [None]
  - Deep vein thrombosis [None]
  - Injury [None]
  - Pain [None]
  - General physical health deterioration [None]
  - Emotional distress [None]
  - Anxiety [None]
  - Pain [None]
  - Pleurisy [None]
  - Muscle spasms [None]
